FAERS Safety Report 10890149 (Version 3)
Quarter: 2015Q4

REPORT INFORMATION
  Report Type: Spontaneous
  Country: US (occurrence: US)
  Receive Date: 20150305
  Receipt Date: 20151002
  Transmission Date: 20160304
  Serious: Yes (Death, Hospitalization)
  Sender: FDA-Public Use
  Company Number: US-ROCHE-1503891

PATIENT
  Age: 94 Year
  Sex: Male

DRUGS (1)
  1. ERIVEDGE [Suspect]
     Active Substance: VISMODEGIB
     Indication: PRODUCT USED FOR UNKNOWN INDICATION
     Dosage: PATIENT RESTARTED HIS MEDICATION RECENTLY (UNKNOWN DATE)
     Route: 048
     Dates: start: 20140722, end: 20141107

REACTIONS (5)
  - Pneumonia [Recovered/Resolved]
  - General physical condition abnormal [Unknown]
  - Dysphagia [Unknown]
  - Death [Fatal]
  - Drug administration error [Unknown]

NARRATIVE: CASE EVENT DATE: 201411
